FAERS Safety Report 23222657 (Version 1)
Quarter: 2023Q4

REPORT INFORMATION
  Report Type: Spontaneous
  Country: CN (occurrence: CN)
  Receive Date: 20231123
  Receipt Date: 20231123
  Transmission Date: 20240110
  Serious: Yes (Other)
  Sender: FDA-Public Use
  Company Number: CN-SA-SAC20231116000300

PATIENT
  Age: 74 Year
  Sex: Female
  Weight: 60 kg

DRUGS (2)
  1. CLOPIDOGREL BISULFATE [Suspect]
     Active Substance: CLOPIDOGREL BISULFATE
     Indication: Arteriosclerosis
     Dosage: 1 DF, QD
     Route: 048
     Dates: start: 20230625, end: 20230626
  2. CLOPIDOGREL BISULFATE [Suspect]
     Active Substance: CLOPIDOGREL BISULFATE
     Indication: Thrombosis

REACTIONS (1)
  - Abdominal discomfort [Recovered/Resolved]

NARRATIVE: CASE EVENT DATE: 20230626
